FAERS Safety Report 11755069 (Version 1)
Quarter: 2015Q4

REPORT INFORMATION
  Report Type: Spontaneous
  Country: BR (occurrence: BR)
  Receive Date: 20151119
  Receipt Date: 20151119
  Transmission Date: 20160304
  Serious: Yes (Other)
  Sender: FDA-Public Use
  Company Number: BR-VALIDUS PHARMACEUTICALS LLC-BR-2015VAL000717

PATIENT

DRUGS (1)
  1. PARLODEL [Suspect]
     Active Substance: BROMOCRIPTINE MESYLATE
     Indication: NEOPLASM
     Dosage: 3 DF, QD
     Route: 048
     Dates: start: 1998

REACTIONS (2)
  - Swelling [Not Recovered/Not Resolved]
  - Seizure [Not Recovered/Not Resolved]
